FAERS Safety Report 12720266 (Version 1)
Quarter: 2016Q3

REPORT INFORMATION
  Report Type: Spontaneous
  Country: US (occurrence: US)
  Receive Date: 20160907
  Receipt Date: 20160907
  Transmission Date: 20161109
  Serious: Yes (Disabling)
  Sender: FDA-Public Use
  Company Number: None

PATIENT
  Age: 56 Year
  Sex: Female
  Weight: 62.1 kg

DRUGS (7)
  1. OMEPRAZOLE. [Concomitant]
     Active Substance: OMEPRAZOLE
  2. E [INVALID] 2 MGVAGINAL RING [Concomitant]
  3. CLINDAMYCIN [Concomitant]
     Active Substance: CLINDAMYCIN\CLINDAMYCIN PHOSPHATE
  4. RANITIDINE. [Concomitant]
     Active Substance: RANITIDINE
  5. PSYLLIUM HUSK [Concomitant]
     Active Substance: PSYLLIUM HUSK
  6. PREDNISONE 10 MG TABLET [Suspect]
     Active Substance: PREDNISONE
     Indication: RADICULAR PAIN
     Route: 048
     Dates: start: 20160823, end: 20160829
  7. NEXABIAOTIC--MULTI-PROBIOTIC [Concomitant]

REACTIONS (3)
  - Paraesthesia [None]
  - Muscular weakness [None]
  - Hypoaesthesia [None]

NARRATIVE: CASE EVENT DATE: 20160829
